FAERS Safety Report 9000158 (Version 1)
Quarter: 2013Q1

REPORT INFORMATION
  Report Type: Report from Study
  Country: CA (occurrence: CA)
  Receive Date: 20130102
  Receipt Date: 20130102
  Transmission Date: 20140127
  Serious: Yes (Hospitalization)
  Sender: FDA-Public Use
  Company Number: CA-JNJFOC-20121213716

PATIENT
  Sex: Female
  Weight: 59.88 kg

DRUGS (5)
  1. REMICADE [Suspect]
     Indication: COLITIS ULCERATIVE
     Route: 042
     Dates: start: 201210
  2. SALOFALK [Concomitant]
     Route: 065
  3. PREDNISONE [Concomitant]
     Route: 065
  4. PENTASA [Concomitant]
     Route: 065
  5. PENTASA [Concomitant]
     Route: 065

REACTIONS (2)
  - Haematochezia [Unknown]
  - Bulimia nervosa [Unknown]
